FAERS Safety Report 9030798 (Version 5)
Quarter: 2013Q3

REPORT INFORMATION
  Report Type: Spontaneous
  Country: US (occurrence: US)
  Receive Date: 20130123
  Receipt Date: 20130716
  Transmission Date: 20140515
  Serious: Yes (Hospitalization, Other)
  Sender: FDA-Public Use
  Company Number: US-MERCK-1301USA010141

PATIENT
  Sex: Female

DRUGS (4)
  1. FOSAMAX [Suspect]
     Indication: OSTEOPOROSIS
     Dosage: 10 MG, UNK
     Route: 048
     Dates: start: 19981012, end: 20010125
  2. FOSAMAX [Suspect]
     Dosage: 70 MG, QW
     Route: 048
     Dates: start: 20010125, end: 200701
  3. BONIVA [Suspect]
     Indication: OSTEOPOROSIS
     Dosage: 150 MG, QM
     Route: 048
     Dates: start: 200701, end: 200912
  4. SYNTHROID [Concomitant]
     Indication: HYPOTHYROIDISM
     Dosage: UNK
     Dates: start: 1992

REACTIONS (22)
  - Femur fracture [Recovered/Resolved]
  - Internal fixation of fracture [Unknown]
  - Fall [Unknown]
  - Chest pain [Unknown]
  - Wisdom teeth removal [Unknown]
  - Rheumatoid arthritis [Not Recovered/Not Resolved]
  - Tooth impacted [Unknown]
  - Dental implantation [Unknown]
  - Lumbar spinal stenosis [Unknown]
  - Vertebral foraminal stenosis [Unknown]
  - Intervertebral disc annular tear [Unknown]
  - Facet joint syndrome [Unknown]
  - Intervertebral disc protrusion [Unknown]
  - Nerve compression [Unknown]
  - Osteosclerosis [Unknown]
  - Postoperative heterotopic calcification [Unknown]
  - Joint effusion [Unknown]
  - Osteoarthritis [Unknown]
  - Osteopenia [Unknown]
  - Rheumatoid nodule [Recovering/Resolving]
  - Pulmonary fibrosis [Unknown]
  - Synovitis [Unknown]
